FAERS Safety Report 9307571 (Version 1)
Quarter: 2013Q2

REPORT INFORMATION
  Report Type: Spontaneous
  Country: DK (occurrence: DK)
  Receive Date: 20130524
  Receipt Date: 20130524
  Transmission Date: 20140414
  Serious: Yes (Other)
  Sender: FDA-Public Use
  Company Number: DK-009507513-1305DNK011261

PATIENT
  Age: 26 Year
  Sex: Female

DRUGS (1)
  1. TRILAFON DECANOATE [Suspect]
     Indication: SCHIZOPHRENIA
     Dosage: 10-FOLD DOSE (540 MG)
     Route: 030

REACTIONS (6)
  - Toxicity to various agents [Recovering/Resolving]
  - Fatigue [Recovering/Resolving]
  - Accidental overdose [Unknown]
  - Musculoskeletal stiffness [Recovering/Resolving]
  - Somnolence [Recovering/Resolving]
  - Hypokinesia [Recovering/Resolving]
